FAERS Safety Report 9413397 (Version 1)
Quarter: 2013Q3

REPORT INFORMATION
  Report Type: Spontaneous
  Country: US (occurrence: None)
  Receive Date: 20130709
  Receipt Date: 20130709
  Transmission Date: 20140515
  Serious: Yes (Hospitalization)
  Sender: FDA-Public Use
  Company Number: 2013SA043917

PATIENT
  Age: 72 Year
  Sex: Female

DRUGS (1)
  1. AMBIEN [Suspect]
     Indication: SLEEP DISORDER
     Route: 048

REACTIONS (5)
  - Somnolence [None]
  - Drug effect decreased [None]
  - Intestinal obstruction [None]
  - Vertigo [None]
  - Fall [None]
